FAERS Safety Report 23600005 (Version 4)
Quarter: 2024Q4

REPORT INFORMATION
  Report Type: Spontaneous
  Country: US (occurrence: US)
  Receive Date: 20240306
  Receipt Date: 20241011
  Transmission Date: 20250114
  Serious: No
  Sender: BRISTOL MYERS SQUIBB
  Company Number: US-BRISTOL-MYERS SQUIBB COMPANY-2024-036016

PATIENT
  Age: 50 Year
  Sex: Male

DRUGS (5)
  1. ORENCIA [Suspect]
     Active Substance: ABATACEPT
     Indication: Psoriatic arthropathy
     Route: 058
     Dates: start: 202402
  2. ORENCIA [Suspect]
     Active Substance: ABATACEPT
     Route: 058
     Dates: start: 202402
  3. ORENCIA [Suspect]
     Active Substance: ABATACEPT
     Route: 058
     Dates: start: 202402
  4. ORENCIA [Suspect]
     Active Substance: ABATACEPT
     Route: 058
     Dates: start: 202402
  5. OTEZLA [Concomitant]
     Active Substance: APREMILAST
     Indication: Product used for unknown indication

REACTIONS (6)
  - Pruritus [Unknown]
  - Skin burning sensation [Unknown]
  - Erythema [Unknown]
  - Injection site pain [Unknown]
  - Injection site haemorrhage [Unknown]
  - Drug ineffective [Unknown]
